FAERS Safety Report 4960209-5 (Version None)
Quarter: 2006Q1

REPORT INFORMATION
  Report Type: 
  Country: None (occurrence: None)
  Receive Date: 20060328
  Receipt Date: 20060313
  Transmission Date: 20060701
  Serious: Yes (Death)
  Sender: FDA-Public Use
  Company Number: T200600059

PATIENT
  Sex: Male

DRUGS (3)
  1. METHADONE HYDROCHLORIDE [Suspect]
     Indication: PAIN MANAGEMENT
     Dosage: 10 MG, ORAL
     Route: 048
  2. PAIN MEDICATION COCKTAIL [Concomitant]
  3. OXYCONTIN [Concomitant]

REACTIONS (5)
  - ACCIDENTAL OVERDOSE [None]
  - DRUG ADMINISTRATION ERROR [None]
  - INCORRECT DOSE ADMINISTERED [None]
  - MEDICATION ERROR [None]
  - RESPIRATORY DEPRESSION [None]
